FAERS Safety Report 13405230 (Version 1)
Quarter: 2017Q2

REPORT INFORMATION
  Report Type: Spontaneous
  Country: US (occurrence: US)
  Receive Date: 20170405
  Receipt Date: 20170405
  Transmission Date: 20170830
  Serious: Yes (Disabling)
  Sender: FDA-Public Use
  Company Number: None

PATIENT
  Age: 51 Year
  Sex: Male
  Weight: 124.74 kg

DRUGS (5)
  1. VITAMIN B [Concomitant]
     Active Substance: VITAMIN B
  2. CALCIUM [Concomitant]
     Active Substance: CALCIUM
  3. DILANTIN [Suspect]
     Active Substance: PHENYTOIN
     Indication: SEIZURE
     Route: 048
     Dates: start: 1990, end: 1997
  4. LISINOPRIL. [Concomitant]
     Active Substance: LISINOPRIL
  5. TOPIRAMATE. [Concomitant]
     Active Substance: TOPIRAMATE

REACTIONS (14)
  - Erectile dysfunction [None]
  - Weight increased [None]
  - Headache [None]
  - Renal disorder [None]
  - Fatigue [None]
  - Toxicity to various agents [None]
  - Confusional state [None]
  - Insomnia [None]
  - Gingival bleeding [None]
  - Dysarthria [None]
  - Sleep apnoea syndrome [None]
  - Dysphagia [None]
  - Major depression [None]
  - Gait disturbance [None]

NARRATIVE: CASE EVENT DATE: 199705
